FAERS Safety Report 8079756-5 (Version None)
Quarter: 2012Q1

REPORT INFORMATION
  Report Type: 
  Country: None (occurrence: None)
  Receive Date: 20120128
  Receipt Date: 20110824
  Transmission Date: 20120608
  Serious: No
  Sender: FDA-Public Use
  Company Number: US-ABBOTT-11P-163-0840534-00

PATIENT
  Sex: Female

DRUGS (7)
  1. CYMBALTA [Concomitant]
     Indication: ANXIETY
  2. LODINE [Concomitant]
     Indication: PSORIATIC ARTHROPATHY
     Dosage: AS REQUIRED
  3. LODINE [Concomitant]
     Indication: HEADACHE
  4. TRAMADOL HCL [Concomitant]
     Indication: PSORIATIC ARTHROPATHY
     Dosage: HCL
  5. TRAMADOL HCL [Concomitant]
     Indication: HEADACHE
  6. HUMIRA [Suspect]
     Indication: PSORIATIC ARTHROPATHY
     Route: 058
     Dates: start: 20110418
  7. LODINE [Concomitant]
     Indication: BREAKTHROUGH PAIN

REACTIONS (13)
  - HEADACHE [None]
  - HEART RATE INCREASED [None]
  - DIARRHOEA [None]
  - VERTIGO [None]
  - MIGRAINE [None]
  - LABYRINTHITIS [None]
  - HYPOAESTHESIA [None]
  - PARAESTHESIA [None]
  - NAUSEA [None]
  - FATIGUE [None]
  - VOMITING [None]
  - MENSTRUATION IRREGULAR [None]
  - PANIC ATTACK [None]
